FAERS Safety Report 20803062 (Version 1)
Quarter: 2022Q2

REPORT INFORMATION
  Report Type: Other
  Country: US (occurrence: None)
  Receive Date: 20220509
  Receipt Date: 20220509
  Transmission Date: 20220721
  Serious: No
  Sender: FDA-Public Use
  Company Number: US-ROCHE-3086561

PATIENT
  Age: 40 Year
  Sex: Female
  Weight: 90.800 kg

DRUGS (1)
  1. OCREVUS [Suspect]
     Active Substance: OCRELIZUMAB
     Indication: Relapsing multiple sclerosis
     Dosage: LAST DOSE OF OCRELIZUMAB WAS RECEIVED ON 15/AUG/2022?PRESCRIBED AS: 300 MG EVERY TWO WEEKS AND 600 M
     Route: 042
     Dates: start: 201808

REACTIONS (4)
  - Vaccination failure [Not Recovered/Not Resolved]
  - COVID-19 [Recovered/Resolved]
  - Attention deficit hyperactivity disorder [Not Recovered/Not Resolved]
  - Feeling abnormal [Unknown]

NARRATIVE: CASE EVENT DATE: 20211201
